FAERS Safety Report 9413582 (Version 1)
Quarter: 2013Q3

REPORT INFORMATION
  Report Type: Spontaneous
  Country: US (occurrence: US)
  Receive Date: 20130722
  Receipt Date: 20130722
  Transmission Date: 20140515
  Serious: No
  Sender: FDA-Public Use
  Company Number: US-009507513-1307USA004509

PATIENT
  Sex: Male

DRUGS (1)
  1. AZASITE [Suspect]
     Dosage: ONE DROP IN EACH EYE TWICE A DAY
     Route: 047

REACTIONS (3)
  - Eye pain [Unknown]
  - Drug prescribing error [Unknown]
  - Incorrect drug administration duration [Unknown]
